FAERS Safety Report 16239416 (Version 2)
Quarter: 2019Q2

REPORT INFORMATION
  Report Type: Spontaneous
  Country: US (occurrence: US)
  Receive Date: 20190425
  Receipt Date: 20190430
  Transmission Date: 20190711
  Serious: Yes (Other)
  Sender: FDA-Public Use
  Company Number: US-PFIZER INC-2019172448

PATIENT
  Age: 8 Year
  Sex: Male

DRUGS (7)
  1. METHOTREXATE SODIUM. [Suspect]
     Active Substance: METHOTREXATE SODIUM
     Indication: ACUTE LYMPHOCYTIC LEUKAEMIA
     Dosage: UNK, CYCLIC (12MG.PER.SQ.M) EVERY 3 MONTHS
     Route: 037
     Dates: start: 1969
  2. VINCRISTINE [Concomitant]
     Active Substance: VINCRISTINE
     Dosage: UNK, CYCLIC(PULSES, 1.5MG.PER SQ. M., EVERY 3 MONTHS)
     Route: 042
     Dates: start: 1969
  3. CYCLOPHOSPHAMIDE. [Concomitant]
     Active Substance: CYCLOPHOSPHAMIDE
     Indication: ACUTE LYMPHOCYTIC LEUKAEMIA
     Dosage: UNK (MAINTAINED)
     Route: 048
     Dates: start: 1969
  4. METHOTREXATE SODIUM. [Suspect]
     Active Substance: METHOTREXATE SODIUM
     Dosage: UNK, CYCLIC (FIFTH PULSE)
     Route: 037
     Dates: start: 19691105
  5. PREDNISONE. [Concomitant]
     Active Substance: PREDNISONE
     Indication: ACUTE LYMPHOCYTIC LEUKAEMIA
     Dosage: UNK, CYCLIC (PULSES,1000MG. PER SQ. M. OF PREDNISONE ORALLY IN 3 DIVIDED DOSES,GIVEN EVERY 3 MONTHS)
     Route: 048
     Dates: start: 1969
  6. VINCRISTINE [Concomitant]
     Active Substance: VINCRISTINE
     Indication: ACUTE LYMPHOCYTIC LEUKAEMIA
     Dosage: UNK, CYCLIC (INDUCTION)
     Route: 042
     Dates: start: 1969
  7. 6-MERCAPTOPURINE MONOHYDRATE [Concomitant]
     Active Substance: MERCAPTOPURINE
     Indication: ACUTE LYMPHOCYTIC LEUKAEMIA
     Dosage: UNK
     Dates: start: 1969

REACTIONS (2)
  - Paraplegia [Unknown]
  - Quadriplegia [Unknown]
